FAERS Safety Report 6031234-0 (Version None)
Quarter: 2009Q1

REPORT INFORMATION
  Report Type: 
  Country: None (occurrence: None)
  Receive Date: 20090108
  Receipt Date: 20081222
  Transmission Date: 20090719
  Serious: Yes (Other)
  Sender: FDA-Public Use
  Company Number: US-BAYER-200841374NA

PATIENT
  Age: 83 Year
  Sex: Male
  Weight: 77 kg

DRUGS (1)
  1. AVELOX [Suspect]
     Indication: LOWER RESPIRATORY TRACT INFECTION BACTERIAL
     Dates: start: 20081215, end: 20081220

REACTIONS (1)
  - BLOOD URINE PRESENT [None]
